FAERS Safety Report 5423022-0 (Version None)
Quarter: 2007Q3

REPORT INFORMATION
  Report Type: 
  Country: None (occurrence: None)
  Receive Date: 20070822
  Receipt Date: 20070810
  Transmission Date: 20080115
  Serious: Yes (Hospitalization, Other)
  Sender: FDA-Public Use
  Company Number: US-PFIZER INC-2007067557

PATIENT
  Sex: Male
  Weight: 79.4 kg

DRUGS (4)
  1. LYRICA [Suspect]
     Indication: POST HERPETIC NEURALGIA
     Dates: start: 20060101, end: 20070805
  2. OXYCONTIN [Concomitant]
  3. CELEXA [Concomitant]
  4. SEROQUEL [Concomitant]

REACTIONS (8)
  - ABNORMAL BEHAVIOUR [None]
  - DEHYDRATION [None]
  - DELIRIUM [None]
  - DRUG INEFFECTIVE [None]
  - DYSPHAGIA [None]
  - HALLUCINATION [None]
  - PARANOIA [None]
  - SEDATION [None]
